FAERS Safety Report 19228908 (Version 3)
Quarter: 2021Q2

REPORT INFORMATION
  Report Type: Report from Study
  Country: US (occurrence: US)
  Receive Date: 20210507
  Receipt Date: 20210518
  Transmission Date: 20210717
  Serious: No
  Sender: FDA-Public Use
  Company Number: US-IPSEN BIOPHARMACEUTICALS, INC.-2021-10919

PATIENT
  Age: 64 Year
  Sex: Female
  Weight: 49.4 kg

DRUGS (1)
  1. DYSPORT [Suspect]
     Active Substance: ABOBOTULINUMTOXINA
     Indication: TORTICOLLIS
     Dosage: 314 IU (125 UNITS IN L SPLENIUS CAPITIS, 63X2 UNITS IN L TRAPEZIUS)
     Route: 030
     Dates: start: 20200714

REACTIONS (2)
  - Product dose omission issue [Unknown]
  - Muscle tightness [Not Recovered/Not Resolved]

NARRATIVE: CASE EVENT DATE: 20210409
